FAERS Safety Report 23497599 (Version 1)
Quarter: 2024Q1

REPORT INFORMATION
  Report Type: Spontaneous
  Country: US (occurrence: None)
  Receive Date: 20240207
  Receipt Date: 20240207
  Transmission Date: 20240409
  Serious: Yes (Other)
  Sender: FDA-Public Use
  Company Number: None

PATIENT
  Age: 70 Year
  Sex: Male

DRUGS (2)
  1. OZEMPIC [Suspect]
     Active Substance: SEMAGLUTIDE
     Dosage: OTHER FREQUENCY : WEEKLY;?
     Route: 058
  2. Ozempic 0.25 mg weekly [Concomitant]
     Dates: start: 20240110

REACTIONS (2)
  - Aggression [None]
  - Mood swings [None]

NARRATIVE: CASE EVENT DATE: 20240115
